FAERS Safety Report 6771038-4 (Version None)
Quarter: 2010Q2

REPORT INFORMATION
  Report Type: 
  Country: None (occurrence: None)
  Receive Date: 20100616
  Receipt Date: 20100604
  Transmission Date: 20101027
  Serious: Yes (Other)
  Sender: FDA-Public Use
  Company Number: US-ASTRAZENECA-2009UW12083

PATIENT
  Age: 15306 Day
  Sex: Male

DRUGS (3)
  1. SEROQUEL [Suspect]
     Indication: POST CONCUSSION SYNDROME
     Dosage: 25-50MG
     Route: 048
     Dates: start: 20020910
  2. PAXIL [Concomitant]
     Indication: POST CONCUSSION SYNDROME
     Dates: start: 20020910
  3. EFFEXOR [Concomitant]
     Indication: POST CONCUSSION SYNDROME
     Dates: start: 20030409

REACTIONS (2)
  - DIABETIC NEUROPATHY [None]
  - TYPE 2 DIABETES MELLITUS [None]
